FAERS Safety Report 4944539-9 (Version None)
Quarter: 2006Q1

REPORT INFORMATION
  Report Type: 
  Country: None (occurrence: None)
  Receive Date: 20060315
  Receipt Date: 20060215
  Transmission Date: 20060701
  Serious: Yes (Other)
  Sender: FDA-Public Use
  Company Number: PHNU2006AU00939

PATIENT
  Age: 3 Year
  Sex: Female

DRUGS (2)
  1. TEGRETOL [Suspect]
     Dosage: 130 MG/D
     Dates: end: 20060213
  2. TEGRETOL [Suspect]
     Dosage: 140 MG/D
     Dates: start: 20060214

REACTIONS (3)
  - BRADYCARDIA [None]
  - COORDINATION ABNORMAL [None]
  - SOMNOLENCE [None]
